FAERS Safety Report 8773900 (Version 1)
Quarter: 2012Q4

REPORT INFORMATION
  Report Type: 
  Country: US (occurrence: US)
  Receive Date: 20120907
  Receipt Date: 20120907
  Transmission Date: 20130627
  Serious: No
  Sender: FDA-Public Use
  Company Number: US-PFIZER INC-2012220130

PATIENT
  Age: 61 Year
  Sex: Male
  Weight: 86.17 kg

DRUGS (2)
  1. LYRICA [Suspect]
     Indication: HERPES ZOSTER
     Dosage: 75 mg, 2x/day
     Dates: start: 2011, end: 20110901
  2. CHROMIUM/CINNAMON [Concomitant]
     Indication: TYPE 2 DIABETES MELLITUS
     Dosage: 500 mg, 2x/day

REACTIONS (1)
  - Weight increased [Recovered/Resolved]
